FAERS Safety Report 5013611-X (Version None)
Quarter: 2006Q2

REPORT INFORMATION
  Report Type: 
  Country: None (occurrence: None)
  Receive Date: 20060530
  Receipt Date: 20060524
  Transmission Date: 20061013
  Serious: Yes (Other)
  Sender: FDA-Public Use
  Company Number: 2494

PATIENT
  Age: 36 Year
  Sex: Female

DRUGS (1)
  1. PAROXETINE [Suspect]
     Indication: DEPRESSION
     Dosage: 20MG PER DAY

REACTIONS (8)
  - ANGER [None]
  - CRYING [None]
  - DEPRESSED MOOD [None]
  - DEPRESSION [None]
  - FATIGUE [None]
  - LETHARGY [None]
  - PHARMACEUTICAL PRODUCT COMPLAINT [None]
  - SUICIDAL IDEATION [None]
